FAERS Safety Report 4449502-2 (Version None)
Quarter: 2004Q3

REPORT INFORMATION
  Report Type: 
  Country: None (occurrence: None)
  Receive Date: 20040914
  Receipt Date: 20040903
  Transmission Date: 20050211
  Serious: Yes (Hospitalization)
  Sender: FDA-Public Use
  Company Number: AT-BRISTOL-MYERS SQUIBB COMPANY-12691879

PATIENT
  Age: 70 Year
  Sex: Female

DRUGS (8)
  1. CARBOPLATIN [Suspect]
     Indication: OVARIAN CANCER
     Dosage: THERAPY DATES: 12-MAR-2003 TO 19-MAY-2003
     Route: 042
     Dates: start: 20030519, end: 20030519
  2. PACLITAXEL [Suspect]
     Indication: OVARIAN CANCER
     Dosage: THERAPY DATES: 12-MAR-2003 TO 19-MAY-2003
     Route: 042
     Dates: start: 20030519, end: 20030519
  3. DEXAMETHASONE [Concomitant]
     Dates: start: 20030311
  4. DEXAMETHASONE [Concomitant]
     Dates: start: 20030312
  5. DIBONDRIN [Concomitant]
     Dates: start: 20030312
  6. NAVOBAN [Concomitant]
     Dates: start: 20030312
  7. RENITEC [Concomitant]
     Dates: start: 19960101
  8. GLUCOPHAGE [Concomitant]
     Dates: start: 20030515

REACTIONS (4)
  - ANOREXIA [None]
  - DECREASED APPETITE [None]
  - FATIGUE [None]
  - VERTIGO [None]
